FAERS Safety Report 11510834 (Version 2)
Quarter: 2015Q4

REPORT INFORMATION
  Report Type: Spontaneous
  Country: JP (occurrence: JP)
  Receive Date: 20150915
  Receipt Date: 20151111
  Transmission Date: 20160304
  Serious: Yes (Other)
  Sender: FDA-Public Use
  Company Number: JP-CELGENE-JPN-2015091768

PATIENT
  Sex: Male
  Weight: 43 kg

DRUGS (2)
  1. ABRAXANE [Suspect]
     Active Substance: PACLITAXEL
     Indication: METASTATIC GASTRIC CANCER
     Route: 041
     Dates: start: 20141205, end: 20150313
  2. DEXART [Concomitant]
     Active Substance: DEXAMETHASONE SODIUM PHOSPHATE
     Indication: PRODUCT USED FOR UNKNOWN INDICATION
     Route: 041
     Dates: start: 20141205, end: 20150313

REACTIONS (2)
  - Intentional product misuse [Recovered/Resolved]
  - Eccrine squamous syringometaplasia [Recovering/Resolving]

NARRATIVE: CASE EVENT DATE: 20150209
